FAERS Safety Report 7465894-4 (Version None)
Quarter: 2011Q2

REPORT INFORMATION
  Report Type: 
  Country: None (occurrence: None)
  Receive Date: 20110509
  Receipt Date: 20100427
  Transmission Date: 20111010
  Serious: No
  Sender: FDA-Public Use
  Company Number: US-ALEXION-A201000479

PATIENT
  Sex: Male

DRUGS (8)
  1. COUMADIN [Concomitant]
     Dosage: 5 MG, QD
     Route: 048
  2. PRILOSEC [Concomitant]
     Dosage: UNK
  3. SOLIRIS [Suspect]
     Dosage: 900 MG, Q2W
     Route: 042
     Dates: start: 20090304
  4. SOLIRIS [Suspect]
     Indication: PAROXYSMAL NOCTURNAL HAEMOGLOBINURIA
     Dosage: 600 MG, QW X 4 WEEKS
     Route: 042
     Dates: start: 20090204, end: 20090225
  5. DANAZOL [Concomitant]
     Dosage: 400 MG, QD
     Route: 048
  6. PREDNISONE [Concomitant]
     Dosage: 2.5 MG, THREE TIMES PER WEEK (Q OTHER DAY)
     Route: 048
  7. SOLIRIS [Suspect]
     Dosage: 1200 MG, UNK
     Route: 042
     Dates: start: 20091222
  8. FOLIC ACID [Concomitant]
     Dosage: UNK

REACTIONS (2)
  - HAEMOLYSIS [None]
  - DRY SKIN [None]
